FAERS Safety Report 6471183-7 (Version None)
Quarter: 2009Q4

REPORT INFORMATION
  Report Type: 
  Country: None (occurrence: None)
  Receive Date: 20091203
  Receipt Date: 20090512
  Transmission Date: 20100525
  Serious: Yes (Hospitalization)
  Sender: FDA-Public Use
  Company Number: FR-ELI_LILLY_AND_COMPANY-FR200802001087

PATIENT
  Sex: Female
  Weight: 45.7 kg

DRUGS (2)
  1. GEMCITABINE HCL [Suspect]
     Indication: BREAST CANCER METASTATIC
     Dosage: (1480 MG), OTHER DAY 1 AND DAY 8 EVERY 3 WEEKS
     Route: 042
     Dates: start: 20080124
  2. VINFLUNINE [Suspect]
     Indication: BREAST CANCER METASTATIC
     Dosage: (475 MG), OTHER, DAY ONE
     Route: 042
     Dates: start: 20080124

REACTIONS (5)
  - ANXIETY [None]
  - FATIGUE [None]
  - HYPERSENSITIVITY [None]
  - ILEUS [None]
  - TRISMUS [None]
